FAERS Safety Report 13867473 (Version 17)
Quarter: 2019Q4

REPORT INFORMATION
  Report Type: Report from Study
  Country: US (occurrence: US)
  Receive Date: 20170814
  Receipt Date: 20191114
  Transmission Date: 20200122
  Serious: Yes (Hospitalization)
  Sender: FDA-Public Use
  Company Number: US-ACTELION-A-US2017-157922

PATIENT
  Age: 86 Year
  Sex: Female

DRUGS (4)
  1. TRACLEER [Suspect]
     Active Substance: BOSENTAN
     Indication: PULMONARY ARTERIAL HYPERTENSION
     Dosage: 125 MG, BID
     Route: 048
     Dates: start: 20041216, end: 201906
  2. MAGNESIUM [Suspect]
     Active Substance: MAGNESIUM
     Indication: PRODUCT USED FOR UNKNOWN INDICATION
     Route: 065
  3. TRACLEER [Suspect]
     Active Substance: BOSENTAN
     Dosage: 125 MG, BID
     Route: 048
     Dates: start: 20041216
  4. AMLODIPINE [Concomitant]
     Active Substance: AMLODIPINE BESYLATE

REACTIONS (24)
  - Renal disorder [Recovering/Resolving]
  - Depression [Unknown]
  - Anaemia [Unknown]
  - Aspiration pleural cavity [Unknown]
  - Haemorrhage [Unknown]
  - Hypotension [Recovering/Resolving]
  - Cellulitis [Unknown]
  - Asthenia [Unknown]
  - Fatigue [Unknown]
  - Fluid retention [Unknown]
  - Platelet count decreased [Unknown]
  - Cardiac failure congestive [Unknown]
  - Therapy non-responder [Unknown]
  - Haematochezia [Unknown]
  - Pleural effusion [Unknown]
  - Malaise [Unknown]
  - Cardiac failure [Unknown]
  - Pneumonia [Unknown]
  - Blood potassium decreased [Unknown]
  - Chills [Unknown]
  - Renal failure [Unknown]
  - Pulmonary oedema [Unknown]
  - Peripheral swelling [Unknown]
  - Dyspnoea [Unknown]

NARRATIVE: CASE EVENT DATE: 20170719
